FAERS Safety Report 4426112-4 (Version None)
Quarter: 2004Q3

REPORT INFORMATION
  Report Type: 
  Country: None (occurrence: None)
  Receive Date: 20040811
  Receipt Date: 20040728
  Transmission Date: 20050211
  Serious: Yes (Death, Life-Threatening, Hospitalization)
  Sender: FDA-Public Use
  Company Number: USA040773834

PATIENT
  Age: 80 Year
  Sex: Male
  Weight: 86 kg

DRUGS (4)
  1. FORTEO [Suspect]
     Indication: OSTEOPOROSIS
     Dosage: 20 UG/1 DAY
     Dates: start: 20030201, end: 20030901
  2. VERAPAMIL [Concomitant]
  3. LEVBID (HYOSCYAMINE SULFATE) [Concomitant]
  4. ARICEPT [Concomitant]

REACTIONS (6)
  - ABASIA [None]
  - BACK PAIN [None]
  - CARDIO-RESPIRATORY ARREST [None]
  - CEREBRAL HAEMORRHAGE [None]
  - COMA [None]
  - NECK PAIN [None]
